FAERS Safety Report 10689011 (Version 1)
Quarter: 2015Q1

REPORT INFORMATION
  Report Type: Spontaneous
  Country: NO (occurrence: NO)
  Receive Date: 20150104
  Receipt Date: 20150104
  Transmission Date: 20150720
  Serious: Yes (Death)
  Sender: FDA-Public Use
  Company Number: NO-TEVA-531472ISR

PATIENT
  Age: 3 Decade
  Sex: Male

DRUGS (2)
  1. PARACETAMOL+CODEINE [Suspect]
     Active Substance: ACETAMINOPHEN\CODEINE PHOSPHATE
     Indication: INTENTIONAL OVERDOSE
     Dosage: 1 DOSAGE FORM = 400MG PARACETAMOL + 30MG CODEINE
     Route: 048
  2. PARACETAMOL+CODEINE [Suspect]
     Active Substance: ACETAMINOPHEN\CODEINE PHOSPHATE
     Dosage: 1 DOSAGE FORM = 400MG PARACETAMOL + 30MG CODEINE; TOOK 6 TABLETS
     Route: 048

REACTIONS (4)
  - Respiratory depression [Fatal]
  - Loss of consciousness [Fatal]
  - Toxicity to various agents [Fatal]
  - Intentional overdose [Unknown]
